FAERS Safety Report 25043489 (Version 1)
Quarter: 2025Q1

REPORT INFORMATION
  Report Type: Spontaneous
  Country: RS (occurrence: US)
  Receive Date: 20250306
  Receipt Date: 20250306
  Transmission Date: 20250408
  Serious: Yes (Other)
  Sender: ALEXION PHARMACEUTICALS
  Company Number: RS-ASTRAZENECA-202502BKN025106RS

PATIENT

DRUGS (2)
  1. LYNPARZA [Suspect]
     Active Substance: OLAPARIB
     Indication: Ovarian cancer
     Dosage: 600 MICROGRAM, QD
     Route: 065
  2. LYNPARZA [Suspect]
     Active Substance: OLAPARIB
     Dosage: 500 MICROGRAM, QD
     Route: 065

REACTIONS (2)
  - Malignant neoplasm progression [Unknown]
  - Anaemia [Unknown]
